FAERS Safety Report 17930627 (Version 5)
Quarter: 2021Q1

REPORT INFORMATION
  Report Type: Report from Study
  Country: GB (occurrence: GB)
  Receive Date: 20200623
  Receipt Date: 20210329
  Transmission Date: 20210419
  Serious: Yes (Hospitalization, Other)
  Sender: FDA-Public Use
  Company Number: GB-JNJFOC-20191226025

PATIENT
  Age: 63 Year
  Sex: Male
  Weight: 98 kg

DRUGS (22)
  1. PREGABALIN. [Concomitant]
     Active Substance: PREGABALIN
     Route: 065
  2. CLINITAS HYDRATE [Concomitant]
     Route: 047
  3. LIDOCAINE. [Concomitant]
     Active Substance: LIDOCAINE
     Route: 065
  4. CARVEDILOL. [Concomitant]
     Active Substance: CARVEDILOL
     Route: 065
  5. EDOXABAN [Concomitant]
     Active Substance: EDOXABAN TOSYLATE
     Route: 065
  6. MOXONIDINE [Concomitant]
     Active Substance: MOXONIDINE
     Route: 065
  7. ASPRIN [Concomitant]
     Active Substance: ASPIRIN
     Route: 065
  8. ATORVASTATIN [Concomitant]
     Active Substance: ATORVASTATIN
     Route: 065
  9. PARACETAMOL [Concomitant]
     Active Substance: ACETAMINOPHEN
  10. FUROSEMIDE. [Concomitant]
     Active Substance: FUROSEMIDE
     Route: 065
  11. CANDESARTAN. [Concomitant]
     Active Substance: CANDESARTAN
     Route: 065
  12. AMIODARONE [Concomitant]
     Active Substance: AMIODARONE
     Route: 065
  13. CODEINE [Concomitant]
     Active Substance: CODEINE
     Route: 065
  14. LEFLUNOMIDE. [Concomitant]
     Active Substance: LEFLUNOMIDE
     Indication: PSORIATIC ARTHROPATHY
     Route: 065
  15. BISACODYL. [Concomitant]
     Active Substance: BISACODYL
     Route: 065
  16. STELARA [Suspect]
     Active Substance: USTEKINUMAB
     Indication: PSORIATIC ARTHROPATHY
     Route: 058
     Dates: start: 20180105
  17. STELARA [Suspect]
     Active Substance: USTEKINUMAB
     Route: 058
     Dates: start: 201910
  18. LANSOPRAZOLE. [Concomitant]
     Active Substance: LANSOPRAZOLE
     Route: 065
  19. GAVISCON                           /00237601/ [Concomitant]
     Active Substance: ALUMINUM HYDROXIDE\MAGNESIUM CARBONATE
     Route: 065
  20. GAVISCON ADVANCE [Concomitant]
     Active Substance: POTASSIUM BICARBONATE\SODIUM ALGINATE
     Route: 048
  21. AMLODIPINE [Concomitant]
     Active Substance: AMLODIPINE BESYLATE
     Route: 065
  22. LOSARTAN. [Concomitant]
     Active Substance: LOSARTAN

REACTIONS (11)
  - Subarachnoid haemorrhage [Unknown]
  - Urticaria [Recovered/Resolved]
  - Myocardial infarction [Recovered/Resolved]
  - Multiple fractures [Recovered/Resolved]
  - Psoriatic arthropathy [Unknown]
  - Atrial fibrillation [Unknown]
  - Drug ineffective [Unknown]
  - Psoriasis [Recovered/Resolved]
  - Cellulitis [Not Recovered/Not Resolved]
  - Gout [Recovered/Resolved]
  - Sciatica [Recovered/Resolved]

NARRATIVE: CASE EVENT DATE: 20181126
